FAERS Safety Report 21400474 (Version 1)
Quarter: 2022Q3

REPORT INFORMATION
  Report Type: Spontaneous
  Country: US (occurrence: None)
  Receive Date: 20220930
  Receipt Date: 20220930
  Transmission Date: 20221027
  Serious: No
  Sender: FDA-Public Use
  Company Number: None

PATIENT
  Age: 59 Year
  Sex: Female

DRUGS (1)
  1. KESIMPTA [Suspect]
     Active Substance: OFATUMUMAB
     Indication: Multiple sclerosis
     Dosage: 20MG MONTHLY SUBQ?
     Route: 058
     Dates: start: 201910

REACTIONS (2)
  - Product dose omission issue [None]
  - Device malfunction [None]

NARRATIVE: CASE EVENT DATE: 20220923
